FAERS Safety Report 5860663-0 (Version None)
Quarter: 2008Q3

REPORT INFORMATION
  Report Type: 
  Country: None (occurrence: None)
  Receive Date: 20080827
  Receipt Date: 20080122
  Transmission Date: 20090109
  Serious: No
  Sender: FDA-Public Use
  Company Number: US-ABBOTT-07P-163-0421314-00

PATIENT
  Sex: Male
  Weight: 68.1 kg

DRUGS (6)
  1. NIASPAN [Suspect]
     Indication: DYSLIPIDAEMIA
     Route: 048
     Dates: start: 20070701, end: 20070801
  2. NIASPAN [Suspect]
     Dates: start: 20030101, end: 20070701
  3. COLESEVELAM HYDROCHLORIDE [Concomitant]
     Indication: DYSLIPIDAEMIA
     Route: 048
  4. POLYCOCINOL [Concomitant]
     Indication: DRUG USE FOR UNKNOWN INDICATION
     Route: 048
  5. RED YEAST RICE [Concomitant]
     Indication: DYSLIPIDAEMIA
     Route: 048
  6. FISH OIL [Concomitant]
     Indication: DYSLIPIDAEMIA
     Route: 048

REACTIONS (4)
  - HEPATIC FUNCTION ABNORMAL [None]
  - NAUSEA [None]
  - VOMITING [None]
  - WEIGHT DECREASED [None]
